FAERS Safety Report 23839056 (Version 1)
Quarter: 2024Q2

REPORT INFORMATION
  Report Type: Spontaneous
  Country: DE (occurrence: DE)
  Receive Date: 20240509
  Receipt Date: 20240509
  Transmission Date: 20240716
  Serious: Yes (Hospitalization)
  Sender: FDA-Public Use
  Company Number: DE-SANDOZ-SDZ2024DE046458

PATIENT
  Age: 37 Year
  Sex: Female

DRUGS (5)
  1. CHLORPROTHIXENE [Suspect]
     Active Substance: CHLORPROTHIXENE
     Indication: Self-destructive behaviour
     Dosage: UNK
     Route: 065
  2. FLUPENTIXOL [Suspect]
     Active Substance: FLUPENTIXOL
     Indication: Self-destructive behaviour
     Dosage: UNK
     Route: 048
  3. GABAPENTIN [Suspect]
     Active Substance: GABAPENTIN
     Indication: Self-destructive behaviour
     Dosage: UNK
     Route: 065
  4. LAMOTRIGINE [Suspect]
     Active Substance: LAMOTRIGINE
     Indication: Depression
     Dosage: UNK
     Route: 065
  5. LAMOTRIGINE [Suspect]
     Active Substance: LAMOTRIGINE
     Indication: Intentional self-injury

REACTIONS (2)
  - Somnolence [Unknown]
  - Drug ineffective [Unknown]
